FAERS Safety Report 14270953 (Version 4)
Quarter: 2018Q4

REPORT INFORMATION
  Report Type: Spontaneous
  Country: PL (occurrence: PL)
  Receive Date: 20171211
  Receipt Date: 20181031
  Transmission Date: 20190204
  Serious: Yes (Life-Threatening, Hospitalization, Other)
  Sender: FDA-Public Use
  Company Number: PL-MYLANLABS-2017M1076398

PATIENT
  Age: 35 Year
  Sex: Female

DRUGS (4)
  1. CARBAMAZEPINE. [Suspect]
     Active Substance: CARBAMAZEPINE
     Indication: EPILEPSY
     Dosage: 100 MG, QD
     Route: 065
  2. SERTRALINE [Concomitant]
     Active Substance: SERTRALINE HYDROCHLORIDE
     Dosage: DOSE REDUCED
     Route: 065
  3. CARBAMAZEPINE. [Suspect]
     Active Substance: CARBAMAZEPINE
     Indication: DEPRESSION
     Dosage: 100 MG, QD
     Route: 065
  4. SERTRALINE [Concomitant]
     Active Substance: SERTRALINE HYDROCHLORIDE
     Indication: DEPRESSION
     Dosage: 1 DAY
     Route: 065

REACTIONS (24)
  - Condition aggravated [Recovered/Resolved]
  - Body temperature increased [Recovered/Resolved]
  - Blister [Recovered/Resolved]
  - Haemoglobin decreased [Recovered/Resolved]
  - Pyrexia [Recovered/Resolved]
  - Haematocrit decreased [Recovered/Resolved]
  - Skin lesion [Recovered/Resolved]
  - Rash papular [Recovered/Resolved]
  - Lymphopenia [Recovered/Resolved]
  - Chills [Recovered/Resolved]
  - Drug reaction with eosinophilia and systemic symptoms [Recovered/Resolved]
  - Red blood cell count decreased [Recovered/Resolved]
  - Oedema [Recovered/Resolved]
  - Papule [Recovered/Resolved]
  - C-reactive protein increased [Recovered/Resolved]
  - Mucous membrane disorder [Recovered/Resolved]
  - Skin burning sensation [Recovered/Resolved]
  - Urticaria [Recovered/Resolved]
  - Asthenia [Recovered/Resolved]
  - Erythema [Recovering/Resolving]
  - Pruritus [Recovered/Resolved]
  - Transaminases increased [Recovered/Resolved]
  - Rash maculo-papular [Recovered/Resolved]
  - Dermatitis exfoliative generalised [Recovered/Resolved]
